FAERS Safety Report 9041928 (Version 1)
Quarter: 2013Q1

REPORT INFORMATION
  Report Type: Spontaneous
  Country: US (occurrence: US)
  Receive Date: 20130129
  Receipt Date: 20130129
  Transmission Date: 20140127
  Serious: No
  Sender: FDA-Public Use
  Company Number: US-ABBOTT-12P-163-0897839-00

PATIENT
  Age: 51 None
  Sex: Female

DRUGS (3)
  1. HUMIRA 40 MG/0.8 ML PEN [Suspect]
     Indication: CROHN^S DISEASE
     Route: 058
     Dates: start: 2010
  2. PREDNISONE [Concomitant]
     Indication: PRODUCT USED FOR UNKNOWN INDICATION
     Dates: end: 2012
  3. IMURAN [Concomitant]
     Indication: CROHN^S DISEASE

REACTIONS (5)
  - Antinuclear antibody positive [Not Recovered/Not Resolved]
  - Double stranded DNA antibody positive [Unknown]
  - Arthralgia [Not Recovered/Not Resolved]
  - Lupus-like syndrome [Unknown]
  - Red blood cell sedimentation rate increased [Unknown]
